FAERS Safety Report 5876169-9 (Version None)
Quarter: 2008Q3

REPORT INFORMATION
  Report Type: 
  Country: None (occurrence: None)
  Receive Date: 20080909
  Receipt Date: 20080909
  Transmission Date: 20090109
  Serious: Yes (Other)
  Sender: FDA-Public Use
  Company Number: None

PATIENT
  Age: 55 Year
  Sex: Female
  Weight: 53.5244 kg

DRUGS (2)
  1. CHANTIX [Suspect]
     Indication: SMOKING CESSATION THERAPY
     Dosage: 1 MG 2 X DAY PO
     Route: 048
     Dates: start: 20070101, end: 20070301
  2. LYRICA [Suspect]
     Indication: FIBROMYALGIA
     Dosage: MINIMAL TO START BUT UNSURE GRADUAL INCREASE PO
     Route: 048
     Dates: start: 20080101, end: 20080121

REACTIONS (15)
  - AGGRESSION [None]
  - ANGER [None]
  - DEPRESSION [None]
  - DISTURBANCE IN ATTENTION [None]
  - DIZZINESS [None]
  - DRY MOUTH [None]
  - FEELING ABNORMAL [None]
  - FORMICATION [None]
  - IMPAIRED DRIVING ABILITY [None]
  - INSOMNIA [None]
  - MOOD ALTERED [None]
  - PSYCHOMOTOR HYPERACTIVITY [None]
  - SUICIDAL IDEATION [None]
  - VERTIGO [None]
  - WEIGHT INCREASED [None]
